FAERS Safety Report 12705285 (Version 4)
Quarter: 2019Q1

REPORT INFORMATION
  Report Type: Report from Study
  Country: JP (occurrence: JP)
  Receive Date: 20160831
  Receipt Date: 20190115
  Transmission Date: 20190417
  Serious: Yes (Hospitalization)
  Sender: FDA-Public Use
  Company Number: JP-ASTRAZENECA-2016SE90535

PATIENT
  Age: 21702 Day
  Sex: Male
  Weight: 71 kg

DRUGS (7)
  1. PLETAAL OD [Concomitant]
     Active Substance: CILOSTAZOL
     Route: 048
  2. AIMIX [Concomitant]
     Active Substance: AMLODIPINE BESYLATE\IRBESARTAN
     Route: 048
  3. BEZATOL SR [Concomitant]
     Active Substance: BEZAFIBRATE
     Route: 048
     Dates: end: 20161224
  4. FORXIGA [Suspect]
     Active Substance: DAPAGLIFLOZIN
     Indication: TYPE 2 DIABETES MELLITUS
     Route: 048
     Dates: start: 20150228
  5. TRICOR [Suspect]
     Active Substance: FENOFIBRATE
     Route: 048
     Dates: start: 20161225, end: 20170428
  6. TRAZENTA [Concomitant]
     Active Substance: LINAGLIPTIN
     Indication: TYPE 2 DIABETES MELLITUS
     Route: 048
  7. BEZATOL SR [Concomitant]
     Active Substance: BEZAFIBRATE
     Route: 048
     Dates: start: 20170429

REACTIONS (2)
  - Intracranial artery dissection [Recovering/Resolving]
  - Gamma-glutamyltransferase increased [Recovered/Resolved]

NARRATIVE: CASE EVENT DATE: 20160116
